FAERS Safety Report 6091612-0 (Version None)
Quarter: 2009Q1

REPORT INFORMATION
  Report Type: 
  Country: None (occurrence: None)
  Receive Date: 20090225
  Receipt Date: 20080225
  Transmission Date: 20090719
  Serious: No
  Sender: FDA-Public Use
  Company Number: A0711616A

PATIENT
  Age: 29 Year
  Sex: Male

DRUGS (3)
  1. VALTREX [Suspect]
     Indication: GENITAL HERPES
     Dosage: 500MG PER DAY
     Route: 048
     Dates: start: 20080201
  2. SUPPLEMENT [Concomitant]
  3. MULTI-VITAMIN [Concomitant]

REACTIONS (3)
  - FATIGUE [None]
  - PARAESTHESIA [None]
  - TESTICULAR PAIN [None]
